FAERS Safety Report 8887673 (Version 1)
Quarter: 2012Q4

REPORT INFORMATION
  Report Type: 
  Country: CA (occurrence: CA)
  Receive Date: 20121106
  Receipt Date: 20121106
  Transmission Date: 20130627
  Serious: Yes (Hospitalization)
  Sender: FDA-Public Use
  Company Number: CA-B.I. PHARMACEUTICALS,INC./RIDGEFIELD-2012-CN-02205CN

PATIENT
  Age: 65 Year
  Sex: Female

DRUGS (1)
  1. PRADAX [Suspect]
     Indication: CARDIAC VALVE PROSTHESIS USER
     Dosage: 220 mg
     Dates: start: 201207, end: 201210

REACTIONS (2)
  - Cardiac valve replacement complication [Recovered/Resolved]
  - Dyspnoea [Unknown]
